FAERS Safety Report 20638237 (Version 1)
Quarter: 2022Q1

REPORT INFORMATION
  Report Type: Spontaneous
  Country: US (occurrence: US)
  Receive Date: 20220325
  Receipt Date: 20220325
  Transmission Date: 20220423
  Serious: Yes (Other)
  Sender: FDA-Public Use
  Company Number: US-SUNOVION-2022SUN000926

PATIENT
  Sex: Female

DRUGS (1)
  1. XOPENEX [Suspect]
     Active Substance: LEVALBUTEROL HYDROCHLORIDE
     Indication: Bronchitis
     Dosage: UNKNOWN
     Route: 055

REACTIONS (5)
  - Glaucoma [Unknown]
  - Asthenia [Unknown]
  - Device delivery system issue [Unknown]
  - Hypertension [Unknown]
  - Product dose omission issue [Unknown]
